FAERS Safety Report 23941215 (Version 1)
Quarter: 2024Q2

REPORT INFORMATION
  Report Type: Report from Study
  Country: US (occurrence: US)
  Receive Date: 20240605
  Receipt Date: 20240605
  Transmission Date: 20240715
  Serious: Yes (Other)
  Sender: FDA-Public Use
  Company Number: US-Eisai-EC-2024-167270

PATIENT
  Age: 80 Year
  Sex: Male

DRUGS (19)
  1. LENVIMA [Suspect]
     Active Substance: LENVATINIB
     Indication: Thyroid cancer
     Route: 048
     Dates: start: 20200311, end: 20200329
  2. LENVIMA [Suspect]
     Active Substance: LENVATINIB
     Route: 048
     Dates: start: 20200330
  3. LENVIMA [Suspect]
     Active Substance: LENVATINIB
     Route: 048
     Dates: start: 2020, end: 20200410
  4. LENVIMA [Suspect]
     Active Substance: LENVATINIB
     Route: 048
     Dates: start: 20200411, end: 2021
  5. LENVIMA [Suspect]
     Active Substance: LENVATINIB
     Route: 048
     Dates: start: 2021, end: 2021
  6. LENVIMA [Suspect]
     Active Substance: LENVATINIB
     Route: 048
     Dates: start: 2021
  7. LENVIMA [Suspect]
     Active Substance: LENVATINIB
     Route: 048
  8. LENVIMA [Suspect]
     Active Substance: LENVATINIB
     Route: 048
  9. LENVIMA [Suspect]
     Active Substance: LENVATINIB
     Route: 048
     Dates: end: 2022
  10. LENVIMA [Suspect]
     Active Substance: LENVATINIB
     Route: 048
     Dates: start: 2022, end: 2022
  11. LENVIMA [Suspect]
     Active Substance: LENVATINIB
     Route: 048
     Dates: start: 2022, end: 2022
  12. LENVIMA [Suspect]
     Active Substance: LENVATINIB
     Route: 048
     Dates: start: 20220602, end: 2022
  13. LENVIMA [Suspect]
     Active Substance: LENVATINIB
     Dosage: 14 MG 1 DAY ALTERNATING WITH 20 MG THE NEXT DAY
     Route: 048
     Dates: start: 2022, end: 2022
  14. LENVIMA [Suspect]
     Active Substance: LENVATINIB
     Dosage: OFF HIS MEDICATION FOR 7 WEEKS DUE TO SURGERY
     Route: 048
     Dates: start: 2022, end: 2022
  15. LENVIMA [Suspect]
     Active Substance: LENVATINIB
     Dosage: 14 MG 1 DAY ALTERNATING WITH 20 MG THE NEXT DAY
     Route: 048
     Dates: start: 20220830, end: 2022
  16. LENVIMA [Suspect]
     Active Substance: LENVATINIB
     Dosage: HELD THE MEDICINE FOR 5 DAYS AT THANKSGIVING AND 4 DAYS AT CHRISTMAS
     Route: 048
     Dates: start: 20221017, end: 202211
  17. LENVIMA [Suspect]
     Active Substance: LENVATINIB
     Dosage: HELD THE MEDICINE FOR 5 DAYS AT THANKSGIVING AND 4 DAYS AT CHRISTMAS
     Route: 048
     Dates: start: 202211, end: 202212
  18. LENVIMA [Suspect]
     Active Substance: LENVATINIB
     Route: 048
     Dates: start: 2023, end: 20231114
  19. LENVIMA [Suspect]
     Active Substance: LENVATINIB
     Route: 048
     Dates: start: 20231208

REACTIONS (5)
  - Pulmonary embolism [Unknown]
  - COVID-19 [Unknown]
  - Pollakiuria [Unknown]
  - Hypertension [Unknown]
  - Diarrhoea [Recovering/Resolving]

NARRATIVE: CASE EVENT DATE: 20240101
